FAERS Safety Report 5962423-9 (Version None)
Quarter: 2008Q4

REPORT INFORMATION
  Report Type: 
  Country: None (occurrence: None)
  Receive Date: 20081121
  Receipt Date: 20081114
  Transmission Date: 20090506
  Serious: Yes (Hospitalization, Disabling)
  Sender: FDA-Public Use
  Company Number: GB-MERCK-0811GBR00064

PATIENT
  Age: 69 Year
  Sex: Male

DRUGS (2)
  1. ZOCOR [Suspect]
     Indication: BLOOD CHOLESTEROL INCREASED
     Route: 048
     Dates: start: 20050101
  2. GOSERELIN ACETATE [Suspect]
     Indication: PROSTATE CANCER
     Route: 058
     Dates: start: 20050701

REACTIONS (2)
  - CONTRACTED BLADDER [None]
  - EOSINOPHILIC CYSTITIS [None]
